FAERS Safety Report 23029444 (Version 1)
Quarter: 2023Q4

REPORT INFORMATION
  Report Type: Spontaneous
  Country: CN (occurrence: CN)
  Receive Date: 20231004
  Receipt Date: 20231004
  Transmission Date: 20240110
  Serious: Yes (Hospitalization, Other)
  Sender: FDA-Public Use
  Company Number: CN-PFIZER INC-PV202300163692

PATIENT
  Age: 3 Year
  Sex: Female
  Weight: 13 kg

DRUGS (7)
  1. CYTARABINE [Suspect]
     Active Substance: CYTARABINE
     Indication: Acute lymphocytic leukaemia
     Dosage: 1.17 G, 2X/DAY (35MG)
     Route: 041
     Dates: start: 20230817, end: 20230819
  2. CYTARABINE [Suspect]
     Active Substance: CYTARABINE
     Indication: Chemotherapy
     Dosage: ARA-C 2G/(M2. TIME), Q12H, D1-3, 4 TIMES IN TOTAL
     Dates: start: 20230817
  3. METHOTREXATE SODIUM [Suspect]
     Active Substance: METHOTREXATE SODIUM
     Indication: Acute lymphocytic leukaemia
     Dosage: 12.5 MG, 1X/DAY, D1
     Route: 037
     Dates: start: 20230817, end: 20230817
  4. DEXAMETHASONE SODIUM PHOSPHATE [Suspect]
     Active Substance: DEXAMETHASONE SODIUM PHOSPHATE
     Indication: Acute lymphocytic leukaemia
     Dosage: 5 MG, 1X/DAY D1
     Route: 037
     Dates: start: 20230817, end: 20230817
  5. DEXAMETHASONE SODIUM PHOSPHATE [Suspect]
     Active Substance: DEXAMETHASONE SODIUM PHOSPHATE
     Dosage: 8 MG/(M2.D), D1-7, D15-21
     Dates: start: 20230817
  6. VINCRISTINE [Suspect]
     Active Substance: VINCRISTINE
     Indication: Chemotherapy
     Dosage: 1.5 MG/(M2.D) (MAX2MG), D1, D8, D15
     Dates: start: 20230817
  7. PEG/L-ASPARAGINASE [Suspect]
     Active Substance: PEGASPARGASE
     Indication: Chemotherapy
     Dosage: 2000U/(M2.D), D3
     Dates: start: 20230817

REACTIONS (6)
  - Myelosuppression [Recovering/Resolving]
  - Pneumonia [Unknown]
  - Oral candidiasis [Unknown]
  - Febrile infection [Unknown]
  - Amylase decreased [Unknown]
  - Pharyngeal erythema [Unknown]

NARRATIVE: CASE EVENT DATE: 20230821
